FAERS Safety Report 4830333-6 (Version None)
Quarter: 2005Q4

REPORT INFORMATION
  Report Type: 
  Country: None (occurrence: None)
  Receive Date: 20051114
  Receipt Date: 20051103
  Transmission Date: 20060501
  Serious: Yes (Life-Threatening, Hospitalization, Other)
  Sender: FDA-Public Use
  Company Number: USA0509107440

PATIENT
  Age: 53 Year
  Sex: Female
  Weight: 55 kg

DRUGS (5)
  1. CYMBALTA (DULOXETINE HYRDOCHLORIDE) [Suspect]
     Indication: DEPRESSION
     Dosage: 60 MG DAY
     Dates: start: 20041022, end: 20041117
  2. XANAX [Concomitant]
  3. OGEN [Concomitant]
  4. KLONOPIN [Concomitant]
  5. IMIPRAMINE [Concomitant]

REACTIONS (4)
  - DRUG LEVEL INCREASED [None]
  - LOSS OF CONSCIOUSNESS [None]
  - MULTIPLE DRUG OVERDOSE INTENTIONAL [None]
  - SUICIDE ATTEMPT [None]
